FAERS Safety Report 6681859-4 (Version None)
Quarter: 2010Q2

REPORT INFORMATION
  Report Type: 
  Country: None (occurrence: None)
  Receive Date: 20100414
  Receipt Date: 20100401
  Transmission Date: 20101027
  Serious: Yes (Hospitalization, Other)
  Sender: FDA-Public Use
  Company Number: ES-ELI_LILLY_AND_COMPANY-ES201004000632

PATIENT
  Sex: Female
  Weight: 97 kg

DRUGS (9)
  1. FORTEO [Suspect]
     Indication: OSTEOPOROSIS
     Dosage: 20 UG, DAILY (1/D)
     Route: 058
     Dates: start: 20090522
  2. STALEVO 100 [Concomitant]
     Indication: PARKINSON'S DISEASE
     Dosage: 200/50/200MG 4C/24H, OTHER
     Route: 048
  3. ESERTIA [Concomitant]
     Indication: PARKINSON'S DISEASE
     Dosage: 20 MG, DAILY (1/D)
     Route: 048
  4. LYRICA [Concomitant]
     Indication: PARKINSON'S DISEASE
     Dosage: 75 MG, DAILY (1/D)
     Route: 048
  5. ENIT [Concomitant]
     Indication: HYPERTENSION
     Dosage: 10 - 20 MG, DAILY (1/D)
     Route: 048
  6. PARACETAMOL [Concomitant]
     Indication: PAIN
     Dosage: 650 MG, IF PAIN
     Route: 048
  7. AZILECT [Concomitant]
     Indication: PARKINSON'S DISEASE
     Dosage: 1 MG, DAILY (1/D)
     Route: 048
  8. OMEPRAZOLE [Concomitant]
     Indication: GASTRIC DISORDER
     Dosage: 20 MG, DAILY (1/D)
     Route: 048
  9. CALCIO [Concomitant]
     Indication: BONE DISORDER
     Dosage: UNK, DAILY (1/D)
     Route: 048

REACTIONS (2)
  - BLADDER DISORDER [None]
  - HIP FRACTURE [None]
